FAERS Safety Report 15548237 (Version 2)
Quarter: 2019Q4

REPORT INFORMATION
  Report Type: Spontaneous
  Country: US (occurrence: US)
  Receive Date: 20181024
  Receipt Date: 20191202
  Transmission Date: 20200122
  Serious: Yes (Other)
  Sender: FDA-Public Use
  Company Number: US-SA-2018SA018532

PATIENT
  Age: 58 Year
  Sex: Female
  Weight: 67 kg

DRUGS (9)
  1. TAXOTERE [Suspect]
     Active Substance: DOCETAXEL
     Indication: BREAST CANCER FEMALE
     Dosage: 220 MG,Q3W
     Route: 042
     Dates: start: 20110902, end: 20110902
  2. DOXYCYCLINE HYDROCHLORIDE [Concomitant]
     Active Substance: DOXYCYCLINE HYDROCHLORIDE
     Dosage: UNK UNK, UNK
     Route: 065
  3. CYTOXAN [Concomitant]
     Active Substance: CYCLOPHOSPHAMIDE
     Dosage: UNK, UNK
  4. TAXOTERE [Suspect]
     Active Substance: DOCETAXEL
     Dosage: 220 MG,Q3W
     Route: 042
     Dates: start: 20111104, end: 20111104
  5. ADRIAMYCIN [Concomitant]
     Active Substance: DOXORUBICIN HYDROCHLORIDE
     Indication: BREAST CANCER FEMALE
     Dosage: UNK
  6. DOXIL [Concomitant]
     Active Substance: DOXORUBICIN HYDROCHLORIDE
     Dosage: UNK
  7. ATENOLOL. [Concomitant]
     Active Substance: ATENOLOL
     Dosage: UNK, UNK
     Route: 065
     Dates: start: 200401, end: 201409
  8. NEOSAR [Concomitant]
     Active Substance: CYCLOPHOSPHAMIDE
     Indication: BREAST CANCER FEMALE
     Dosage: UNK UNK, UNK
     Route: 065
  9. LOSARTAN. [Concomitant]
     Active Substance: LOSARTAN
     Dosage: UNK, UNK
     Route: 065
     Dates: start: 200401, end: 201109

REACTIONS (1)
  - Alopecia [Recovering/Resolving]

NARRATIVE: CASE EVENT DATE: 201105
